FAERS Safety Report 12208226 (Version 4)
Quarter: 2016Q4

REPORT INFORMATION
  Report Type: Spontaneous
  Country: US (occurrence: US)
  Receive Date: 20160324
  Receipt Date: 20161110
  Transmission Date: 20170207
  Serious: Yes (Other)
  Sender: FDA-Public Use
  Company Number: US-BAUSCH-BL-2016-005209

PATIENT
  Sex: Male

DRUGS (1)
  1. PROVENGE [Suspect]
     Active Substance: SIPULEUCEL-T
     Indication: PROSTATE CANCER
     Route: 042
     Dates: start: 20160204, end: 20160204

REACTIONS (3)
  - Bacteraemia [Recovered/Resolved]
  - Pneumonia pneumococcal [Recovered/Resolved]
  - Ill-defined disorder [Recovered/Resolved]
